FAERS Safety Report 4465436-1 (Version None)
Quarter: 2004Q4

REPORT INFORMATION
  Report Type: 
  Country: None (occurrence: None)
  Receive Date: 20041004
  Receipt Date: 20040929
  Transmission Date: 20050328
  Serious: Yes (Death, Life-Threatening, Hospitalization)
  Sender: FDA-Public Use
  Company Number: FR-GLAXOSMITHKLINE-B0346636A

PATIENT
  Age: 45 Year
  Sex: Male

DRUGS (1)
  1. AUGMENTIN '125' [Suspect]
     Indication: WOUND
     Dosage: 1G SINGLE DOSE
     Route: 042
     Dates: start: 20040826, end: 20040826

REACTIONS (7)
  - ANAPHYLACTIC SHOCK [None]
  - APNOEA [None]
  - CARDIAC ARREST [None]
  - CIRCULATORY COLLAPSE [None]
  - PRURITUS [None]
  - RASH [None]
  - TACHYCARDIA [None]
